FAERS Safety Report 8907226 (Version 1)
Quarter: 2012Q4

REPORT INFORMATION
  Report Type: 
  Country: US (occurrence: US)
  Receive Date: 20121113
  Receipt Date: 20121113
  Transmission Date: 20130627
  Serious: No
  Sender: FDA-Public Use
  Company Number: US-AMGEN-USASP2012010556

PATIENT
  Age: 45 Year
  Sex: Female
  Weight: 79.37 kg

DRUGS (8)
  1. ENBREL [Suspect]
     Indication: PRODUCT USED FOR UNKNOWN INDICATION
     Dosage: 25 mg, 2 times/wk
  2. PREDNISONE [Concomitant]
     Dosage: UNK
  3. METHOTREXATE [Concomitant]
     Dosage: 2.5 mg, UNK
  4. AMINOSYN                           /00502901/ [Concomitant]
     Dosage: UNK
  5. PAIN RELIEVER [Concomitant]
     Dosage: 500 mg, UNK
  6. MIDOL                              /00002701/ [Concomitant]
     Dosage: 200 mg, UNK
  7. EXCEDRIN                           /00110301/ [Concomitant]
     Dosage: UNK
  8. MULTIVITAMIN AND MINERAL [Concomitant]
     Dosage: UNK

REACTIONS (2)
  - Headache [Unknown]
  - Injection site bruising [Unknown]
